FAERS Safety Report 16729006 (Version 1)
Quarter: 2019Q3

REPORT INFORMATION
  Report Type: Spontaneous
  Country: ES (occurrence: ES)
  Receive Date: 20190822
  Receipt Date: 20190822
  Transmission Date: 20191005
  Serious: Yes (Life-Threatening, Hospitalization)
  Sender: FDA-Public Use
  Company Number: ES-TEVA-2019-ES-1094677

PATIENT
  Age: 72 Year
  Sex: Male

DRUGS (4)
  1. DOXORUBICINA (202A) [Suspect]
     Active Substance: DOXORUBICIN HYDROCHLORIDE
     Dates: start: 20190315
  2. DEXAMETASONA [Suspect]
     Active Substance: DEXAMETHASONE
     Dates: start: 20190315
  3. VINCRISTINE [Suspect]
     Active Substance: VINCRISTINE
     Dates: start: 20190315
  4. CYCLOPHOSFAMIDE [Suspect]
     Active Substance: CYCLOPHOSPHAMIDE
     Dates: start: 20190315

REACTIONS (2)
  - Platelet disorder [Unknown]
  - Neutropenia [Unknown]

NARRATIVE: CASE EVENT DATE: 20190315
